FAERS Safety Report 6394798-3 (Version None)
Quarter: 2009Q4

REPORT INFORMATION
  Report Type: 
  Country: None (occurrence: None)
  Receive Date: 20091009
  Receipt Date: 20090908
  Transmission Date: 20100525
  Serious: No
  Sender: FDA-Public Use
  Company Number: US-BAYER-200932824NA

PATIENT
  Age: 21 Year
  Sex: Female

DRUGS (1)
  1. MIRENA [Suspect]
     Indication: CONTRACEPTION
     Route: 015
     Dates: start: 20080601

REACTIONS (4)
  - ABDOMINAL PAIN LOWER [None]
  - HEADACHE [None]
  - MEDICAL DEVICE COMPLICATION [None]
  - NAUSEA [None]
